FAERS Safety Report 20826022 (Version 1)
Quarter: 2022Q2

REPORT INFORMATION
  Report Type: Spontaneous
  Country: US (occurrence: None)
  Receive Date: 20220512
  Receipt Date: 20220512
  Transmission Date: 20220721
  Serious: Yes (Death)
  Sender: FDA-Public Use
  Company Number: None

PATIENT
  Age: 57 Year
  Sex: Female

DRUGS (1)
  1. NUEDEXTA [Suspect]
     Active Substance: DEXTROMETHORPHAN HYDROBROMIDE\QUINIDINE SULFATE
     Indication: Amyotrophic lateral sclerosis
     Dosage: OTHER QUANTITY : 20/10MG;?FREQUENCY : TWICE A DAY;?
     Route: 048
     Dates: start: 20200612, end: 20220413

REACTIONS (2)
  - Disease progression [None]
  - Death [None]

NARRATIVE: CASE EVENT DATE: 20220413
